FAERS Safety Report 15498921 (Version 1)
Quarter: 2018Q4

REPORT INFORMATION
  Report Type: Spontaneous
  Country: US (occurrence: US)
  Receive Date: 20181009
  Receipt Date: 20181009
  Transmission Date: 20190205
  Serious: No
  Sender: FDA-Public Use
  Company Number: None

PATIENT
  Sex: Female

DRUGS (1)
  1. OTEZLA [Suspect]
     Active Substance: APREMILAST
     Indication: PSORIASIS
     Route: 048
     Dates: start: 201806

REACTIONS (6)
  - Nausea [None]
  - Dizziness [None]
  - Therapy cessation [None]
  - Diarrhoea [None]
  - Psoriasis [None]
  - Condition aggravated [None]
